FAERS Safety Report 19052616 (Version 2)
Quarter: 2021Q1

REPORT INFORMATION
  Report Type: Report from Study
  Country: NL (occurrence: NL)
  Receive Date: 20210324
  Receipt Date: 20210331
  Transmission Date: 20210420
  Serious: Yes (Hospitalization)
  Sender: FDA-Public Use
  Company Number: NVSC2021NL064197

PATIENT
  Age: 64 Year
  Sex: Male
  Weight: 102 kg

DRUGS (11)
  1. FAMPYRA [Concomitant]
     Active Substance: DALFAMPRIDINE
     Indication: GAIT DISTURBANCE
     Dosage: 10 MG, BID
     Route: 065
     Dates: start: 20171015
  2. AMLODIPINE [Concomitant]
     Active Substance: AMLODIPINE BESYLATE
     Indication: HYPERTENSION
     Dosage: 8 MG, QD
     Route: 065
     Dates: start: 20190702
  3. MOVICOLON [Concomitant]
     Active Substance: POLYETHYLENE GLYCOL 3350\POTASSIUM CHLORIDE\SODIUM BICARBONATE\SODIUM CHLORIDE
     Indication: CONSTIPATION
     Dosage: 1 UNK, QD
     Route: 065
     Dates: start: 20170209
  4. BAF312 COMP?BAF+ [Suspect]
     Active Substance: SIPONIMOD
     Indication: SECONDARY PROGRESSIVE MULTIPLE SCLEROSIS
     Dosage: 2 MG, QD
     Route: 048
     Dates: start: 20160212
  5. TAMSULOSINE [Concomitant]
     Active Substance: TAMSULOSIN HYDROCHLORIDE
     Indication: NEUROGENIC BLADDER
     Dosage: 0.4 MG, QD
     Route: 065
     Dates: start: 20210121
  6. AMITRIPTYLINE [Concomitant]
     Active Substance: AMITRIPTYLINE
     Indication: MUSCLE SPASMS
     Dosage: 20 MG, BID
     Route: 065
     Dates: start: 20150812
  7. PREGABALINE [Concomitant]
     Active Substance: PREGABALIN
     Indication: MUSCLE SPASMS
     Dosage: 150 MG, TID
     Route: 065
     Dates: start: 200709
  8. ATORVASTATINE [Concomitant]
     Active Substance: ATORVASTATIN
     Indication: HYPERCHOLESTEROLAEMIA
     Dosage: 40 MG, QD
     Route: 065
     Dates: start: 200006
  9. BETMIGA [Concomitant]
     Active Substance: MIRABEGRON
     Indication: NEUROGENIC BLADDER
     Dosage: 50 MG, QD
     Route: 065
     Dates: start: 20201209
  10. DICLOFENAC [Concomitant]
     Active Substance: DICLOFENAC
     Indication: LUMBAR SPINAL STENOSIS
     Dosage: 50 MG, PRN
     Route: 065
     Dates: start: 20210224
  11. SIPONIMOD [Suspect]
     Active Substance: SIPONIMOD
     Indication: SECONDARY PROGRESSIVE MULTIPLE SCLEROSIS
     Dosage: UNK
     Route: 048
     Dates: start: 20140513, end: 20160211

REACTIONS (1)
  - Lumbar spinal stenosis [Recovered/Resolved]

NARRATIVE: CASE EVENT DATE: 20190808
